FAERS Safety Report 9799607 (Version 1)
Quarter: 2014Q1

REPORT INFORMATION
  Report Type: Spontaneous
  Country: FR (occurrence: FR)
  Receive Date: 20140106
  Receipt Date: 20140106
  Transmission Date: 20141002
  Serious: Yes (Hospitalization)
  Sender: FDA-Public Use
  Company Number: FR-US-EMD SERONO, INC.-7259713

PATIENT
  Age: 37 Year
  Sex: Female

DRUGS (6)
  1. GONAL-F [Suspect]
     Indication: IN VITRO FERTILISATION
     Route: 058
     Dates: start: 20130220
  2. GONAL-F [Suspect]
     Route: 058
  3. GONAL-F [Suspect]
     Route: 058
  4. GONAL-F [Suspect]
     Route: 058
     Dates: end: 20130301
  5. ORGALUTRAN /01453701/ [Suspect]
     Indication: IN VITRO FERTILISATION
     Dosage: FROM WEEK 6 TO WEEK 10
     Route: 058
     Dates: start: 20130225, end: 20130301
  6. SERUM GONADOTROPHIN [Suspect]
     Indication: IN VITRO FERTILISATION
     Dosage: LYOPHILISATE AND SOLUTION FOR INTRAMUSCULAR PARENTERAL USE (SINGLE DOSE)
     Route: 030
     Dates: start: 20130302

REACTIONS (4)
  - Haematocrit increased [Recovered/Resolved]
  - Pleural effusion [Recovered/Resolved]
  - Ascites [Recovered/Resolved]
  - Ovarian hyperstimulation syndrome [Recovered/Resolved]
